FAERS Safety Report 5674969-1 (Version None)
Quarter: 2008Q2

REPORT INFORMATION
  Report Type: 
  Country: None (occurrence: None)
  Receive Date: 20080303
  Receipt Date: 20070904
  Transmission Date: 20081010
  Serious: Yes (Hospitalization)
  Sender: FDA-Public Use
  Company Number: RB-7882-2007

PATIENT
  Age: 24 Year
  Sex: Male
  Weight: 63.5036 kg

DRUGS (2)
  1. SUBOXONE [Suspect]
     Indication: DRUG DEPENDENCE
     Dosage: 12 MG QD SUBLINGUAL ; 4 MG QD SUBLINGUAL
     Route: 060
     Dates: start: 20060101, end: 20070101
  2. SUBOXONE [Suspect]
     Indication: DRUG DEPENDENCE
     Dosage: 12 MG QD SUBLINGUAL ; 4 MG QD SUBLINGUAL
     Route: 060
     Dates: start: 20070101

REACTIONS (4)
  - FATIGUE [None]
  - NAUSEA [None]
  - VOMITING [None]
  - WEIGHT DECREASED [None]
